FAERS Safety Report 7951604-0 (Version None)
Quarter: 2011Q4

REPORT INFORMATION
  Report Type: 
  Country: None (occurrence: None)
  Receive Date: 20111201
  Receipt Date: 20111123
  Transmission Date: 20120403
  Serious: Yes (Other)
  Sender: FDA-Public Use
  Company Number: US-JNJFOC-20111110549

PATIENT
  Sex: Female
  Weight: 49.9 kg

DRUGS (4)
  1. TOPAMAX [Suspect]
     Indication: MIGRAINE
     Dosage: 1/2 200 MG TABLET/ ONCE A DAY/ORAL
     Route: 048
  2. TOPAMAX [Suspect]
     Route: 048
     Dates: start: 20080101
  3. SYNTHROID [Suspect]
     Indication: HYPOTHYROIDISM
     Route: 048
  4. ZOLOFT [Concomitant]
     Indication: ANXIETY
     Route: 048

REACTIONS (7)
  - DRUG PRESCRIBING ERROR [None]
  - FOOD ALLERGY [None]
  - COELIAC DISEASE [None]
  - FATIGUE [None]
  - HYPOTHYROIDISM [None]
  - VITAMIN D DECREASED [None]
  - THYROID NEOPLASM [None]
